FAERS Safety Report 6263544-6 (Version None)
Quarter: 2009Q3

REPORT INFORMATION
  Report Type: 
  Country: None (occurrence: None)
  Receive Date: 20090710
  Receipt Date: 20090414
  Transmission Date: 20100115
  Serious: No
  Sender: FDA-Public Use
  Company Number: A0778724A

PATIENT
  Age: 56 Year
  Sex: Female

DRUGS (6)
  1. TYKERB [Suspect]
     Indication: OVARIAN CANCER
     Dosage: 1250MG PER DAY
     Route: 048
     Dates: start: 20090330
  2. LYRICA [Concomitant]
  3. CYMBALTA [Concomitant]
  4. CRESTOR [Concomitant]
  5. TRAMADOL [Concomitant]
  6. ARIMIDEX [Concomitant]

REACTIONS (3)
  - DIARRHOEA [None]
  - FATIGUE [None]
  - NAUSEA [None]
